FAERS Safety Report 8409586-3 (Version None)
Quarter: 2012Q2

REPORT INFORMATION
  Report Type: 
  Country: None (occurrence: None)
  Receive Date: 20120531
  Receipt Date: 20120531
  Transmission Date: 20120825
  Serious: No
  Sender: FDA-Public Use
  Company Number: None

PATIENT
  Sex: Female
  Weight: 100 kg

DRUGS (1)
  1. DEFINITY [Suspect]
     Indication: DIAGNOSTIC PROCEDURE
     Dosage: 1.5 ML ONCE IV
     Route: 042
     Dates: start: 20120509

REACTIONS (2)
  - BACK PAIN [None]
  - INJECTION RELATED REACTION [None]
